FAERS Safety Report 9838995 (Version 5)
Quarter: 2014Q1

REPORT INFORMATION
  Report Type: Spontaneous
  Country: IT (occurrence: IT)
  Receive Date: 20140123
  Receipt Date: 20140319
  Transmission Date: 20141002
  Serious: Yes (Other)
  Sender: FDA-Public Use
  Company Number: IT-PFIZER INC-2014022278

PATIENT
  Age: 58 Year
  Sex: Female

DRUGS (5)
  1. ALPRAZOLAM [Suspect]
     Indication: INSOMNIA
     Dosage: 20 ML, TOTAL DOSE
     Route: 048
     Dates: start: 20131118, end: 20131118
  2. TRIAZOLAM [Suspect]
     Indication: INSOMNIA
     Dosage: 30 DF, TOTAL DOSE
     Route: 048
     Dates: start: 20131118, end: 20131118
  3. LOSARTAN ALMUS [Concomitant]
     Dosage: 50 MG, UNK
  4. INDERAL [Concomitant]
     Dosage: 40 MG, UNK
  5. EFEXOR [Concomitant]
     Dosage: 75 MG, DAILY (1 UNIT)
     Route: 048

REACTIONS (2)
  - Overdose [Recovering/Resolving]
  - Psychomotor skills impaired [Recovering/Resolving]
